FAERS Safety Report 18392764 (Version 2)
Quarter: 2020Q4

REPORT INFORMATION
  Report Type: Report from Study
  Country: ES (occurrence: ES)
  Receive Date: 20201016
  Receipt Date: 20201023
  Transmission Date: 20210114
  Serious: No
  Sender: FDA-Public Use
  Company Number: ES-PFIZER INC-2020392163

PATIENT
  Age: 40 Year
  Sex: Male

DRUGS (14)
  1. TRAMADOL. [Suspect]
     Active Substance: TRAMADOL
     Dosage: UNK
     Route: 065
  2. PARACETAMOL [Suspect]
     Active Substance: ACETAMINOPHEN
     Dosage: UNK
  3. ALCOHOL. [Suspect]
     Active Substance: ALCOHOL
     Dosage: UNK
     Route: 065
  4. DIAZEPAM. [Suspect]
     Active Substance: DIAZEPAM
     Dosage: UNK
     Route: 065
  5. PREGABALIN. [Suspect]
     Active Substance: PREGABALIN
     Dosage: UNK
     Route: 065
  6. ALPRAZOLAM. [Suspect]
     Active Substance: ALPRAZOLAM
     Dosage: UNK
     Route: 065
  7. BUPRENORPHINE HYDROCHLORIDE. [Suspect]
     Active Substance: BUPRENORPHINE HYDROCHLORIDE
     Dosage: UNK
     Route: 065
  8. METHADONE [Suspect]
     Active Substance: METHADONE HYDROCHLORIDE
     Dosage: UNK
     Route: 065
  9. NORDAZEPAM [Suspect]
     Active Substance: NORDAZEPAM
     Dosage: UNK
     Route: 065
  10. PARACETAMOL [Suspect]
     Active Substance: ACETAMINOPHEN
     Dosage: UNK
     Route: 065
  11. LORMETAZEPAM [Suspect]
     Active Substance: LORMETAZEPAM
     Dosage: UNK
     Route: 065
  12. TAPENTADOL [Suspect]
     Active Substance: TAPENTADOL
     Indication: ANKYLOSING SPONDYLITIS
     Dosage: 250 MG, 2X/DAY RETARD
     Route: 065
  13. LORAZEPAM. [Suspect]
     Active Substance: LORAZEPAM
     Dosage: UNK
     Route: 065
  14. OXAZEPAM. [Suspect]
     Active Substance: OXAZEPAM
     Dosage: UNK
     Route: 065

REACTIONS (1)
  - No adverse event [Unknown]
